FAERS Safety Report 7534153-3 (Version None)
Quarter: 2011Q2

REPORT INFORMATION
  Report Type: 
  Country: None (occurrence: None)
  Receive Date: 20110608
  Receipt Date: 20061030
  Transmission Date: 20111010
  Serious: Yes (Hospitalization)
  Sender: FDA-Public Use
  Company Number: PHFR2006GB03095

PATIENT
  Sex: Male

DRUGS (9)
  1. KWELLS [Concomitant]
     Dosage: 300 MG, BID
     Route: 065
  2. VITAMIN B COMPLEX CAP [Concomitant]
     Dosage: 5 MG, QD
     Route: 065
  3. OLANZAPINE [Concomitant]
     Dosage: PRN
     Route: 065
  4. THIAMINE [Concomitant]
     Dosage: 100 MG, BID
     Route: 065
  5. CLOZAPINE [Suspect]
     Dosage: 1600 MG, ONCE/SINGLE
     Route: 048
     Dates: start: 20061013
  6. CLOZAPINE [Suspect]
     Indication: SCHIZOPHRENIA
     Dosage: 650 MG, DAILY
     Route: 048
     Dates: start: 20011218, end: 20061014
  7. CLOZAPINE [Suspect]
     Dosage: 50 MG, BID
     Route: 048
     Dates: start: 20061024
  8. DIAZEPAM [Concomitant]
     Dosage: PRN
     Route: 065
  9. ZOPICLONE [Concomitant]
     Dosage: PRN
     Route: 065

REACTIONS (5)
  - INTENTIONAL SELF-INJURY [None]
  - INTENTIONAL OVERDOSE [None]
  - GAMMA-GLUTAMYLTRANSFERASE INCREASED [None]
  - SOMNOLENCE [None]
  - ALCOHOL ABUSE [None]
